FAERS Safety Report 25787217 (Version 1)
Quarter: 2025Q3

REPORT INFORMATION
  Report Type: Spontaneous
  Country: EU (occurrence: EU)
  Receive Date: 20250910
  Receipt Date: 20250910
  Transmission Date: 20251021
  Serious: Yes (Other)
  Sender: ORGANON
  Company Number: EU-ORGANON-O2509ITA000472

PATIENT
  Age: 81 Year
  Sex: Female

DRUGS (2)
  1. SIMVASTATIN [Suspect]
     Active Substance: SIMVASTATIN
     Indication: Prophylaxis
     Dosage: 20 MG/DAY
  2. EZETIMIBE [Concomitant]
     Active Substance: EZETIMIBE
     Dosage: 10 MG/DAY

REACTIONS (1)
  - Immune-mediated myositis [Recovering/Resolving]
